FAERS Safety Report 7904509-5 (Version None)
Quarter: 2011Q4

REPORT INFORMATION
  Report Type: 
  Country: None (occurrence: None)
  Receive Date: 20111109
  Receipt Date: 20111025
  Transmission Date: 20120403
  Serious: Yes (Death, Other)
  Sender: FDA-Public Use
  Company Number: KR-ASTRAZENECA-2011SE57597

PATIENT
  Age: 29 Year
  Sex: Female

DRUGS (1)
  1. PROPOFOL [Suspect]
     Indication: ANAESTHESIA PROCEDURE
     Route: 040

REACTIONS (3)
  - CARDIO-RESPIRATORY ARREST [None]
  - HYPERKALAEMIA [None]
  - VENTRICULAR FIBRILLATION [None]
